FAERS Safety Report 14566012 (Version 1)
Quarter: 2018Q1

REPORT INFORMATION
  Report Type: Spontaneous
  Country: US (occurrence: US)
  Receive Date: 20180222
  Receipt Date: 20180222
  Transmission Date: 20180509
  Serious: Yes (Hospitalization)
  Sender: FDA-Public Use
  Company Number: None

PATIENT
  Age: 65 Year
  Sex: Male
  Weight: 78.7 kg

DRUGS (1)
  1. CISPLATIN. [Suspect]
     Active Substance: CISPLATIN
     Dates: end: 20130723

REACTIONS (11)
  - Osteoradionecrosis [None]
  - Infection [None]
  - Fibrosis [None]
  - Laryngeal inflammation [None]
  - Klebsiella infection [None]
  - Trismus [None]
  - Pneumonia [None]
  - Impaired healing [None]
  - Skin graft [None]
  - Fistula [None]
  - Osteomyelitis [None]

NARRATIVE: CASE EVENT DATE: 20170808
